FAERS Safety Report 7656137-7 (Version None)
Quarter: 2011Q3

REPORT INFORMATION
  Report Type: 
  Country: None (occurrence: None)
  Receive Date: 20110804
  Receipt Date: 20110802
  Transmission Date: 20111222
  Serious: Yes (Death, Other)
  Sender: FDA-Public Use
  Company Number: NZ-B.I. PHARMACEUTICALS,INC./RIDGEFIELD-2011-AU-00610AU

PATIENT
  Age: 9 Decade
  Sex: Female

DRUGS (2)
  1. WARFARIN SODIUM [Concomitant]
  2. PRADAXA [Suspect]
     Dates: start: 20110701

REACTIONS (3)
  - CONFUSIONAL STATE [None]
  - CEREBRAL ARTERY EMBOLISM [None]
  - DEATH [None]
